FAERS Safety Report 7685271-0 (Version None)
Quarter: 2011Q3

REPORT INFORMATION
  Report Type: 
  Country: None (occurrence: None)
  Receive Date: 20110816
  Receipt Date: 20110812
  Transmission Date: 20111222
  Serious: Yes (Hospitalization, Other)
  Sender: FDA-Public Use
  Company Number: CZ-PFIZER INC-2011172068

PATIENT
  Age: 33 Year
  Sex: Male

DRUGS (2)
  1. HALOPERIDOL [Concomitant]
     Dates: end: 20110605
  2. ZIPRASIDONE HYDROCHLORIDE [Suspect]
     Indication: SCHIZOPHRENIA
     Dosage: 2 ML, 2X/DAY
     Dates: start: 20110608, end: 20110615

REACTIONS (8)
  - ANXIETY [None]
  - MEMORY IMPAIRMENT [None]
  - ANOSOGNOSIA [None]
  - EXTRAPYRAMIDAL DISORDER [None]
  - CONVULSION [None]
  - SALIVARY HYPERSECRETION [None]
  - CONJUNCTIVITIS [None]
  - PARAESTHESIA [None]
